FAERS Safety Report 20564899 (Version 3)
Quarter: 2022Q1

REPORT INFORMATION
  Report Type: Spontaneous
  Country: GB (occurrence: GB)
  Receive Date: 20220308
  Receipt Date: 20220324
  Transmission Date: 20220423
  Serious: Yes (Hospitalization, Other)
  Sender: FDA-Public Use
  Company Number: GB-ABBVIE-22K-167-4302066-00

PATIENT
  Age: 75 Year
  Sex: Female

DRUGS (3)
  1. VENETOCLAX [Suspect]
     Active Substance: VENETOCLAX
     Indication: Acute myeloid leukaemia
     Route: 048
  2. VENETOCLAX [Suspect]
     Active Substance: VENETOCLAX
     Route: 048
  3. AZACITIDINE [Suspect]
     Active Substance: AZACITIDINE
     Indication: Acute myeloid leukaemia
     Route: 065

REACTIONS (16)
  - Atrial fibrillation [Unknown]
  - Febrile neutropenia [Recovered/Resolved]
  - Pneumonia [Unknown]
  - Neutropenia [Unknown]
  - Cytopenia [Unknown]
  - Anaemia [Unknown]
  - Febrile neutropenia [Unknown]
  - Sepsis [Unknown]
  - Diarrhoea [Unknown]
  - Thrombocytopenia [Unknown]
  - Vomiting [Unknown]
  - Oedema peripheral [Unknown]
  - Hypokalaemia [Unknown]
  - Leukopenia [Unknown]
  - Nausea [Unknown]
  - Constipation [Unknown]
